FAERS Safety Report 14063115 (Version 1)
Quarter: 2017Q4

REPORT INFORMATION
  Report Type: Spontaneous
  Country: US (occurrence: US)
  Receive Date: 20171009
  Receipt Date: 20171009
  Transmission Date: 20180321
  Serious: Yes (Other)
  Sender: FDA-Public Use
  Company Number: US-WEST-WARD PHARMACEUTICALS CORP.-US-H14001-17-03710

PATIENT
  Sex: Female

DRUGS (3)
  1. MEDROL [Suspect]
     Active Substance: METHYLPREDNISOLONE
     Indication: PRODUCT USED FOR UNKNOWN INDICATION
     Route: 065
  2. METHOTREXATE. [Suspect]
     Active Substance: METHOTREXATE
     Indication: PRODUCT USED FOR UNKNOWN INDICATION
     Route: 065
  3. ENBREL [Suspect]
     Active Substance: ETANERCEPT
     Indication: PRODUCT USED FOR UNKNOWN INDICATION
     Route: 065

REACTIONS (16)
  - Muscular weakness [Unknown]
  - Musculoskeletal stiffness [Unknown]
  - Dry mouth [Unknown]
  - Muscle tightness [Unknown]
  - Glomerular filtration rate decreased [Unknown]
  - Joint swelling [Unknown]
  - Myalgia [Unknown]
  - Red blood cell sedimentation rate increased [Unknown]
  - Muscle spasms [Unknown]
  - Albumin globulin ratio decreased [Unknown]
  - Weight increased [Unknown]
  - Fatigue [Unknown]
  - C-reactive protein increased [Unknown]
  - Peripheral swelling [Unknown]
  - Blood albumin decreased [Unknown]
  - Arthralgia [Unknown]
